FAERS Safety Report 13823129 (Version 2)
Quarter: 2017Q3

REPORT INFORMATION
  Report Type: Report from Study
  Country: None (occurrence: SA)
  Receive Date: 20170801
  Receipt Date: 20170821
  Transmission Date: 20171127
  Serious: Yes (Death)
  Sender: FDA-Public Use
  Company Number: SA-ABBVIE-17K-259-2057443-00

PATIENT
  Age: 65 Year
  Sex: Female

DRUGS (1)
  1. DUODOPA [Suspect]
     Active Substance: CARBIDOPA\LEVODOPA
     Indication: PARKINSON^S DISEASE
     Dosage: INFUSION FOR 16 HOURS
     Route: 050
     Dates: start: 20170426, end: 20170718

REACTIONS (1)
  - Sudden death [Fatal]

NARRATIVE: CASE EVENT DATE: 20170721
